FAERS Safety Report 8107088-5 (Version None)
Quarter: 2012Q1

REPORT INFORMATION
  Report Type: 
  Country: None (occurrence: None)
  Receive Date: 20120202
  Receipt Date: 20120126
  Transmission Date: 20120608
  Serious: Yes (Hospitalization)
  Sender: FDA-Public Use
  Company Number: US-AMGEN-USASP2011023012

PATIENT
  Age: 48 Year
  Sex: Female

DRUGS (2)
  1. ENBREL [Suspect]
     Indication: RHEUMATOID ARTHRITIS
     Dosage: 50 MG, QWK
     Dates: start: 20100101
  2. ENBREL [Suspect]
     Dosage: 50 MG, QWK
     Dates: start: 20100401, end: 20101001

REACTIONS (7)
  - ARTHRALGIA [None]
  - PAIN [None]
  - MUSCULOSKELETAL STIFFNESS [None]
  - PAIN IN EXTREMITY [None]
  - JOINT STIFFNESS [None]
  - ABASIA [None]
  - DRUG INEFFECTIVE [None]
